FAERS Safety Report 8537111-5 (Version None)
Quarter: 2012Q3

REPORT INFORMATION
  Report Type: 
  Country: None (occurrence: None)
  Receive Date: 20120725
  Receipt Date: 20120720
  Transmission Date: 20120928
  Serious: Yes (Life-Threatening, Hospitalization)
  Sender: FDA-Public Use
  Company Number: JP-PFIZER INC-2012152652

PATIENT
  Age: 33 Year
  Sex: Male
  Weight: 50.1 kg

DRUGS (10)
  1. NAPROXEN [Concomitant]
     Dosage: 100 MG, 3X/DAY
     Route: 048
  2. DOMPERIDONE [Concomitant]
     Dosage: 10 MG, AS NEEDED
     Route: 048
     Dates: start: 20120511
  3. DECADRON [Concomitant]
     Dosage: 4 MG, 2X/DAY
     Route: 048
  4. PENTAZOCINE LACTATE [Concomitant]
     Dosage: 15 MG, AS NEEDED
     Route: 042
     Dates: start: 20120523, end: 20120626
  5. URSODEOXYCHOLIC ACID [Concomitant]
     Dosage: 200 MG, 3X/DAY
     Route: 048
     Dates: start: 20120608, end: 20120626
  6. XALKORI [Suspect]
     Dosage: 200 MG, UNK
     Route: 048
     Dates: start: 20120610, end: 20120611
  7. LANSOPRAZOLE [Concomitant]
     Dosage: 15 MG, 1X/DAY
     Route: 048
  8. XALKORI [Suspect]
     Indication: NON-SMALL CELL LUNG CANCER
     Dosage: 250 MG, 2X/DAY
     Route: 048
     Dates: start: 20120511, end: 20120523
  9. XALKORI [Suspect]
     Dosage: UNKNOWN DOSE, 2X/DAY
     Route: 048
     Dates: start: 20120529, end: 20120604
  10. MINOFIT [Concomitant]
     Dosage: 40 ML, 1X/DAY
     Route: 042
     Dates: start: 20120604, end: 20120621

REACTIONS (1)
  - INTERSTITIAL LUNG DISEASE [None]
